FAERS Safety Report 18623317 (Version 2)
Quarter: 2020Q4

REPORT INFORMATION
  Report Type: Report from Study
  Country: IT (occurrence: IT)
  Receive Date: 20201216
  Receipt Date: 20201222
  Transmission Date: 20210114
  Serious: Yes (Other)
  Sender: FDA-Public Use
  Company Number: IT-PFIZER INC-2020495269

PATIENT
  Age: 73 Year
  Sex: Female

DRUGS (2)
  1. ZARELIS [Suspect]
     Active Substance: VENLAFAXINE HYDROCHLORIDE
     Dosage: 10 DF TOTAL
     Route: 048
     Dates: start: 20201124, end: 20201124
  2. TAVOR (LORAZEPAM) [Suspect]
     Active Substance: LORAZEPAM
     Dosage: 10 DF TOTAL
     Route: 048
     Dates: start: 20201124, end: 20201124

REACTIONS (4)
  - Fall [Recovering/Resolving]
  - Sopor [Recovering/Resolving]
  - Head injury [Recovering/Resolving]
  - Drug abuse [Recovering/Resolving]

NARRATIVE: CASE EVENT DATE: 20201124
